FAERS Safety Report 5489868-8 (Version None)
Quarter: 2007Q4

REPORT INFORMATION
  Report Type: 
  Country: None (occurrence: None)
  Receive Date: 20071018
  Receipt Date: 20071012
  Transmission Date: 20080405
  Serious: Yes (Other)
  Sender: FDA-Public Use
  Company Number: CA-ASTRAZENECA-2007UW24020

PATIENT
  Sex: Female

DRUGS (8)
  1. CRESTOR [Suspect]
  2. LIPITOR [Suspect]
  3. APO-SULFATRIM DS [Concomitant]
     Route: 048
  4. CALCIUM [Concomitant]
     Route: 048
  5. CLORAZEPATE [Concomitant]
     Route: 048
  6. ELIROXIN [Concomitant]
     Route: 048
  7. NITROLINGUAL [Concomitant]
     Route: 060
  8. VITAMIN D [Concomitant]
     Route: 048

REACTIONS (4)
  - BALANCE DISORDER [None]
  - FALL [None]
  - MUSCLE SPASMS [None]
  - MUSCULAR WEAKNESS [None]
